FAERS Safety Report 6710360-4 (Version None)
Quarter: 2010Q2

REPORT INFORMATION
  Report Type: 
  Country: None (occurrence: None)
  Receive Date: 20100430
  Receipt Date: 20100422
  Transmission Date: 20101027
  Serious: Yes (Other)
  Sender: FDA-Public Use
  Company Number: 2010AL002476

PATIENT
  Age: 48 Year
  Sex: Male

DRUGS (8)
  1. NIFEDIPINE [Suspect]
     Indication: PERIPHERAL COLDNESS
     Dosage: 5 MG; TID; PO
     Route: 048
     Dates: start: 20091210
  2. WARFARIN [Concomitant]
  3. PERINDOPRIL [Concomitant]
  4. RANITIDINE [Concomitant]
  5. SERTRALINE HCL [Concomitant]
  6. FUROSEMIDE [Concomitant]
  7. MIRTAZAPINE [Concomitant]
  8. FLUTICASONE PROPIONATE [Concomitant]

REACTIONS (3)
  - INTERNATIONAL NORMALISED RATIO INCREASED [None]
  - POST PROCEDURAL HAEMORRHAGE [None]
  - TOOTH DISORDER [None]
